FAERS Safety Report 6133259-3 (Version None)
Quarter: 2009Q1

REPORT INFORMATION
  Report Type: 
  Country: None (occurrence: None)
  Receive Date: 20090326
  Receipt Date: 20090316
  Transmission Date: 20090719
  Serious: Yes (Death)
  Sender: FDA-Public Use
  Company Number: US-SP-2009-01130

PATIENT
  Age: 62 Year
  Sex: Male

DRUGS (1)
  1. BOTULISM ANTITOXIN [Suspect]
     Indication: BOTULISM
     Route: 065
     Dates: start: 20070519

REACTIONS (3)
  - DEATH [None]
  - GUILLAIN-BARRE SYNDROME [None]
  - MENTAL DISORDER [None]
